FAERS Safety Report 21751392 (Version 1)
Quarter: 2022Q4

REPORT INFORMATION
  Report Type: Spontaneous
  Country: US (occurrence: US)
  Receive Date: 20221220
  Receipt Date: 20221220
  Transmission Date: 20230113
  Serious: No
  Sender: FDA-Public Use
  Company Number: US-AUROBINDO-AUR-APL-2022-014257

PATIENT
  Age: 52 Year
  Sex: Male

DRUGS (2)
  1. AMOXICILLIN [Suspect]
     Active Substance: AMOXICILLIN
     Indication: Helicobacter infection
     Dosage: UNK
     Route: 065
  2. LEVOFLOXACIN [Suspect]
     Active Substance: LEVOFLOXACIN
     Indication: Helicobacter infection
     Dosage: UNK
     Route: 065

REACTIONS (3)
  - Arthralgia [Unknown]
  - Nausea [Unknown]
  - Knee deformity [Unknown]

NARRATIVE: CASE EVENT DATE: 20220418
